FAERS Safety Report 4892170-6 (Version None)
Quarter: 2006Q1

REPORT INFORMATION
  Report Type: 
  Country: None (occurrence: None)
  Receive Date: 20060126
  Receipt Date: 20060111
  Transmission Date: 20060701
  Serious: Yes (Death, Hospitalization)
  Sender: FDA-Public Use
  Company Number: FRWYE294212JAN06

PATIENT
  Age: 71 Year
  Sex: Female

DRUGS (2)
  1. ENBREL [Suspect]
     Indication: RHEUMATOID ARTHRITIS
     Route: 058
     Dates: start: 20000201
  2. DELURSAN [Concomitant]
     Indication: BILIARY CIRRHOSIS PRIMARY
     Dosage: UNKNOWN

REACTIONS (4)
  - ANTI-NEUTROPHIL CYTOPLASMIC ANTIBODY POSITIVE VASCULITIS [None]
  - GLOMERULONEPHRITIS RAPIDLY PROGRESSIVE [None]
  - NEPHROTIC SYNDROME [None]
  - VASCULITIS NECROTISING [None]
